FAERS Safety Report 8607325-4 (Version None)
Quarter: 2012Q3

REPORT INFORMATION
  Report Type: 
  Country: None (occurrence: None)
  Receive Date: 20120808
  Receipt Date: 20120723
  Transmission Date: 20120928
  Serious: Yes (Other)
  Sender: FDA-Public Use
  Company Number: DSA_58632_2012

PATIENT
  Sex: Female

DRUGS (1)
  1. NIFEDIPINE [Suspect]
     Indication: PRODUCT USED FOR UNKNOWN INDICATION
     Dosage: (30 MG (STRENGTH AND FREQUENCY UNSPECIFIED))

REACTIONS (6)
  - HEART RATE IRREGULAR [None]
  - ABDOMINAL PAIN [None]
  - FEELING ABNORMAL [None]
  - PANCREATIC PSEUDOCYST [None]
  - CHEST PAIN [None]
  - MUSCLE SPASMS [None]
